FAERS Safety Report 19069163 (Version 1)
Quarter: 2021Q1

REPORT INFORMATION
  Report Type: Spontaneous
  Country: DE (occurrence: DE)
  Receive Date: 20210329
  Receipt Date: 20210329
  Transmission Date: 20210420
  Serious: Yes (Other)
  Sender: FDA-Public Use
  Company Number: DE-IBIGEN-2021.10017

PATIENT
  Age: 28 Year
  Sex: Male

DRUGS (5)
  1. NITROPRUSSIDE [Suspect]
     Active Substance: NITROPRUSSIDE
     Dosage: ?
  2. CLOZAPINE. [Suspect]
     Active Substance: CLOZAPINE
     Route: 048
  3. VASOPRESSIN. [Suspect]
     Active Substance: VASOPRESSIN
  4. PHYSOSTIGMINE [Suspect]
     Active Substance: PHYSOSTIGMINE
     Dosage: ?
  5. PIPERACILLIN AND TAZOBACTAM [Suspect]
     Active Substance: PIPERACILLIN SODIUM\TAZOBACTAM SODIUM
     Dosage: ?

REACTIONS (28)
  - Atelectasis [Recovered/Resolved]
  - Sepsis [Recovered/Resolved]
  - Mydriasis [Recovered/Resolved]
  - Tachycardia [Recovered/Resolved]
  - Lung infiltration [Recovered/Resolved]
  - Pneumomediastinum [Recovered/Resolved]
  - Pneumonia [Recovering/Resolving]
  - Somnolence [Recovered/Resolved]
  - Delirium [Recovered/Resolved]
  - Hypertension [Recovered/Resolved]
  - Vomiting [Recovered/Resolved]
  - Septic shock [Recovered/Resolved]
  - Hyperhidrosis [Recovered/Resolved]
  - Salivary hypersecretion [Recovered/Resolved]
  - Emphysema [Recovered/Resolved]
  - Disturbance in attention [Recovered/Resolved]
  - Sinus tachycardia [Recovered/Resolved]
  - Toxicity to various agents [Recovered/Resolved]
  - Respiratory failure [Recovered/Resolved]
  - Mechanical ventilation [Recovered/Resolved]
  - Communication disorder [Recovered/Resolved]
  - Aptyalism [Recovered/Resolved]
  - Crush syndrome [Recovered/Resolved]
  - Overdose [Recovered/Resolved]
  - Anticholinergic syndrome [Recovered/Resolved]
  - Rhabdomyolysis [Recovering/Resolving]
  - Oxygen saturation decreased [Recovered/Resolved]
  - Acute kidney injury [Recovering/Resolving]
